FAERS Safety Report 4489058-1 (Version None)
Quarter: 2004Q4

REPORT INFORMATION
  Report Type: 
  Country: None (occurrence: None)
  Receive Date: 20041029
  Receipt Date: 20030605
  Transmission Date: 20050328
  Serious: Yes (Hospitalization, Other)
  Sender: FDA-Public Use
  Company Number: US-MERCK-0306USA00933

PATIENT
  Age: 66 Year
  Sex: Male
  Weight: 96 kg

DRUGS (13)
  1. VIOXX [Suspect]
     Route: 048
  2. SYNTHROID [Concomitant]
     Route: 048
  3. VICODIN [Concomitant]
     Route: 065
  4. VITAMINS (UNSPECIFIED) [Concomitant]
     Route: 065
  5. ZOCOR [Concomitant]
     Route: 048
  6. DARVOCET-N 100 [Concomitant]
     Route: 065
  7. ELAVIL [Concomitant]
     Route: 065
  8. ALPRAZOLAM [Concomitant]
     Route: 065
  9. CLARINEX [Concomitant]
     Route: 065
  10. AMBIEN [Concomitant]
     Route: 065
  11. ASPIRIN [Concomitant]
     Route: 065
  12. ZOLOFT [Concomitant]
     Route: 065
  13. [COMPOSITION UNSPECIFIED] [Concomitant]
     Route: 065

REACTIONS (19)
  - ANGINA PECTORIS [None]
  - ANXIETY [None]
  - BLOOD CHOLESTEROL INCREASED [None]
  - BLOOD PRESSURE INCREASED [None]
  - CATARACT [None]
  - CONVULSION [None]
  - DEPRESSION [None]
  - HEADACHE [None]
  - HYPOAESTHESIA [None]
  - INSOMNIA [None]
  - INTERVERTEBRAL DISC PROTRUSION [None]
  - JOINT SWELLING [None]
  - LUMBAR SPINAL STENOSIS [None]
  - NERVOUSNESS [None]
  - OEDEMA PERIPHERAL [None]
  - PARAESTHESIA [None]
  - RETINAL VEIN OCCLUSION [None]
  - TENSION [None]
  - TRANSIENT ISCHAEMIC ATTACK [None]
